FAERS Safety Report 5055485-7 (Version None)
Quarter: 2006Q3

REPORT INFORMATION
  Report Type: 
  Country: None (occurrence: None)
  Receive Date: 20060717
  Receipt Date: 20060717
  Transmission Date: 20061208
  Serious: Yes (Hospitalization)
  Sender: FDA-Public Use
  Company Number: None

PATIENT
  Age: 55 Year
  Sex: Female
  Weight: 99.7913 kg

DRUGS (11)
  1. TAXOL [Suspect]
     Indication: BREAST CANCER
     Dosage: 140 MG IV Q WK
     Route: 042
     Dates: start: 20060310
  2. MOTRIN [Concomitant]
  3. MICARDIS [Concomitant]
  4. AROMIDEX [Concomitant]
  5. ATIVAN [Concomitant]
  6. DECADRON [Concomitant]
  7. AVASTIN [Concomitant]
  8. BENADRYL [Concomitant]
  9. FAMOTIDINE [Concomitant]
  10. PREDNISONE [Concomitant]
  11. MORPHINE [Concomitant]

REACTIONS (5)
  - ADVERSE DRUG REACTION [None]
  - CHEST PAIN [None]
  - DYSPNOEA [None]
  - INFUSION RELATED REACTION [None]
  - SCREAMING [None]
